FAERS Safety Report 16539277 (Version 2)
Quarter: 2019Q3

REPORT INFORMATION
  Report Type: Report from Study
  Country: None (occurrence: KW)
  Receive Date: 20190708
  Receipt Date: 20190803
  Transmission Date: 20191004
  Serious: Yes (Hospitalization)
  Sender: FDA-Public Use
  Company Number: KW-ABBVIE-19K-091-2844674-00

PATIENT
  Age: 15 Year
  Sex: Female
  Weight: 52 kg

DRUGS (7)
  1. HUMIRA [Suspect]
     Active Substance: ADALIMUMAB
     Route: 058
     Dates: start: 201907
  2. GASEC [Concomitant]
     Active Substance: OMEPRAZOLE SODIUM
     Indication: GASTRIC DISORDER
     Route: 048
     Dates: end: 201907
  3. IMURAN [Concomitant]
     Active Substance: AZATHIOPRINE
     Indication: CROHN^S DISEASE
     Route: 048
     Dates: end: 201907
  4. FEFOL [Concomitant]
     Active Substance: FERROUS SULFATE\FOLIC ACID
     Indication: BLOOD IRON
     Route: 048
     Dates: end: 201907
  5. HUMIRA [Suspect]
     Active Substance: ADALIMUMAB
     Indication: CROHN^S DISEASE
     Route: 058
     Dates: start: 20180227, end: 20190623
  6. VITAMIN D3 [Concomitant]
     Active Substance: CHOLECALCIFEROL
     Indication: VITAMIN SUPPLEMENTATION
     Route: 048
     Dates: end: 201907
  7. FEFOL [Concomitant]
     Active Substance: FERROUS SULFATE\FOLIC ACID
     Indication: VITAMIN SUPPLEMENTATION

REACTIONS (2)
  - Gastritis [Not Recovered/Not Resolved]
  - Cholelithiasis [Not Recovered/Not Resolved]

NARRATIVE: CASE EVENT DATE: 20190701
